FAERS Safety Report 13736911 (Version 1)
Quarter: 2017Q3

REPORT INFORMATION
  Report Type: Spontaneous
  Country: US (occurrence: US)
  Receive Date: 20170710
  Receipt Date: 20170710
  Transmission Date: 20171127
  Serious: No
  Sender: FDA-Public Use
  Company Number: None

PATIENT
  Age: 20 Year
  Sex: Female
  Weight: 67.5 kg

DRUGS (2)
  1. ARNUITY ELLIPTA [Concomitant]
     Active Substance: FLUTICASONE FUROATE
  2. ZYRTEC [Suspect]
     Active Substance: CETIRIZINE HYDROCHLORIDE
     Indication: MULTIPLE ALLERGIES
     Dosage: ?          QUANTITY:1 TABLET(S);?DAILY ORAL
     Route: 048

REACTIONS (4)
  - Irritability [None]
  - Pruritus generalised [None]
  - Insomnia [None]
  - Fatigue [None]

NARRATIVE: CASE EVENT DATE: 20170707
